FAERS Safety Report 5803435-5 (Version None)
Quarter: 2008Q2

REPORT INFORMATION
  Report Type: 
  Country: None (occurrence: None)
  Receive Date: 20080627
  Receipt Date: 20080304
  Transmission Date: 20081010
  Serious: Yes (Other)
  Sender: FDA-Public Use
  Company Number: 45785

PATIENT
  Age: 43 Year
  Sex: Male
  Weight: 79 kg

DRUGS (1)
  1. VECURONIUM BROMIDE [Suspect]
     Indication: ENDOTRACHEAL INTUBATION
     Dosage: IV BOLUS
     Route: 040
     Dates: start: 20080304

REACTIONS (1)
  - DRUG INEFFECTIVE [None]
